FAERS Safety Report 8605925-9 (Version None)
Quarter: 2012Q3

REPORT INFORMATION
  Report Type: 
  Country: None (occurrence: None)
  Receive Date: 20120807
  Receipt Date: 20120724
  Transmission Date: 20120928
  Serious: Yes (Hospitalization)
  Sender: FDA-Public Use
  Company Number: 2012070140

PATIENT
  Age: 87 Year
  Sex: Female

DRUGS (4)
  1. TORSEMIDE [Suspect]
     Indication: HYPERTENSION
     Dosage: 10 MG (10 MG, 1 IN 1 D), ORAL
     Route: 048
     Dates: start: 20120601, end: 20120608
  2. OKI (KETOPROFENE) [Suspect]
     Indication: HEADACHE
     Dosage: 80 MG (80 MG, 1 IN 1 D), ORAL
     Route: 048
     Dates: start: 20120530, end: 20120608
  3. ACTONEL [Concomitant]
  4. LOSARTAN POTASSIUM [Suspect]
     Indication: HYPERTENSION
     Dosage: 50 MG (50 MG, 1 IN 1 D), ORAL
     Route: 048
     Dates: start: 20110601, end: 20120608

REACTIONS (5)
  - CONDITION AGGRAVATED [None]
  - NEPHROANGIOSCLEROSIS [None]
  - RENAL ARTERIOSCLEROSIS [None]
  - RENAL FAILURE CHRONIC [None]
  - RENAL ARTERY STENOSIS [None]
